FAERS Safety Report 11333207 (Version 1)
Quarter: 2015Q3

REPORT INFORMATION
  Report Type: Spontaneous
  Country: US (occurrence: US)
  Receive Date: 20150803
  Receipt Date: 20150803
  Transmission Date: 20151125
  Serious: No
  Sender: FDA-Public Use
  Company Number: US-ELI_LILLY_AND_COMPANY-US200708001590

PATIENT
  Age: 36 Year
  Sex: Male
  Weight: 153.29 kg

DRUGS (3)
  1. NAVANE [Concomitant]
     Active Substance: THIOTHIXENE
     Dates: start: 19991106
  2. LITHIUM. [Concomitant]
     Active Substance: LITHIUM
     Dates: start: 19991103, end: 20000414
  3. ZYPREXA [Suspect]
     Active Substance: OLANZAPINE
     Indication: BIPOLAR DISORDER
     Dosage: 30 MG, UNK
     Dates: start: 20000114

REACTIONS (7)
  - Tremor [Not Recovered/Not Resolved]
  - Type 2 diabetes mellitus [Not Recovered/Not Resolved]
  - Lacrimation increased [Not Recovered/Not Resolved]
  - Prescribed overdose [Unknown]
  - Vision blurred [Not Recovered/Not Resolved]
  - Weight increased [Not Recovered/Not Resolved]
  - Muscle spasms [Not Recovered/Not Resolved]

NARRATIVE: CASE EVENT DATE: 20000114
